FAERS Safety Report 8004741-9 (Version None)
Quarter: 2011Q4

REPORT INFORMATION
  Report Type: 
  Country: None (occurrence: None)
  Receive Date: 20111223
  Receipt Date: 20111216
  Transmission Date: 20120403
  Serious: Yes (Death)
  Sender: FDA-Public Use
  Company Number: US-CELGENEUS-163-21880-11112244

PATIENT
  Sex: Male

DRUGS (9)
  1. ASPIRIN [Concomitant]
     Route: 065
  2. NEURONTIN [Concomitant]
     Route: 065
  3. VALACYCLOVIR [Concomitant]
     Route: 065
  4. OMEPRAZOLE [Concomitant]
     Route: 065
  5. VITAMIN B COMPLEX CAP [Concomitant]
     Route: 065
  6. K SUPPLEMENT [Concomitant]
     Route: 065
  7. M.V.I. [Concomitant]
     Route: 065
  8. DECADRON [Concomitant]
     Route: 065
  9. REVLIMID [Suspect]
     Dosage: 15 MILLIGRAM
     Route: 048
     Dates: start: 20090201

REACTIONS (1)
  - ROAD TRAFFIC ACCIDENT [None]
